FAERS Safety Report 21036989 (Version 1)
Quarter: 2022Q3

REPORT INFORMATION
  Report Type: Spontaneous
  Country: DE (occurrence: None)
  Receive Date: 20220702
  Receipt Date: 20220702
  Transmission Date: 20221027
  Serious: Yes (Other)
  Sender: FDA-Public Use
  Company Number: 2022A186378

PATIENT
  Sex: Female

DRUGS (2)
  1. FASENRA [Suspect]
     Active Substance: BENRALIZUMAB
     Indication: Asthma
     Route: 058
  2. MEPOLIZUMAB [Concomitant]
     Active Substance: MEPOLIZUMAB

REACTIONS (12)
  - Asthma [Unknown]
  - Eosinophilia [Unknown]
  - Eosinophilic granulomatosis with polyangiitis [Unknown]
  - Antineutrophil cytoplasmic antibody increased [Unknown]
  - Drug ineffective [Unknown]
  - Cough [Unknown]
  - Rhinorrhoea [Unknown]
  - Ear discomfort [Unknown]
  - Dyspnoea [Unknown]
  - Sneezing [Unknown]
  - Productive cough [Unknown]
  - Sputum discoloured [Unknown]
